FAERS Safety Report 8813999 (Version 1)
Quarter: 2012Q4

REPORT INFORMATION
  Report Type: 
  Country: US (occurrence: US)
  Receive Date: 20120928
  Receipt Date: 20120928
  Transmission Date: 20130627
  Serious: No
  Sender: FDA-Public Use
  Company Number: US-PFIZER INC-2012238248

PATIENT
  Age: 78 Year
  Sex: Male
  Weight: 99.77 kg

DRUGS (2)
  1. SUTENT [Suspect]
     Indication: GASTROINTESTINAL STROMAL TUMOUR
     Dosage: 50 mg, 1x/day
     Dates: start: 20120828
  2. TORSEMIDE [Concomitant]
     Indication: DIURETIC THERAPY
     Dosage: 10 mg, alternate day

REACTIONS (3)
  - Oedema peripheral [Not Recovered/Not Resolved]
  - Skin discolouration [Not Recovered/Not Resolved]
  - Rash [Not Recovered/Not Resolved]
